FAERS Safety Report 21454104 (Version 1)
Quarter: 2022Q4

REPORT INFORMATION
  Report Type: Spontaneous
  Country: US (occurrence: US)
  Receive Date: 20221013
  Receipt Date: 20221013
  Transmission Date: 20230113
  Serious: No
  Sender: FDA-Public Use
  Company Number: US-ELI_LILLY_AND_COMPANY-US202210000655

PATIENT
  Age: 33 Year
  Sex: Female

DRUGS (1)
  1. MOUNJARO [Suspect]
     Active Substance: TIRZEPATIDE
     Indication: Polycystic ovaries
     Dosage: 2.5 MG, WEEKLY (1/W)
     Route: 058
     Dates: start: 20220919

REACTIONS (3)
  - Abdominal distension [Recovering/Resolving]
  - Product storage error [Recovering/Resolving]
  - Off label use [Unknown]

NARRATIVE: CASE EVENT DATE: 20220919
